FAERS Safety Report 5165643-9 (Version None)
Quarter: 2006Q4

REPORT INFORMATION
  Report Type: 
  Country: None (occurrence: None)
  Receive Date: 20061206
  Receipt Date: 20061124
  Transmission Date: 20070319
  Serious: Yes (Other)
  Sender: FDA-Public Use
  Company Number: 2006GB02147

PATIENT
  Age: 51 Year
  Sex: Female
  Weight: 63.5 kg

DRUGS (3)
  1. ARIMIDEX [Suspect]
     Indication: BREAST CANCER
     Route: 048
     Dates: start: 20061020, end: 20061031
  2. DICLOFENAC SODIUM [Suspect]
     Route: 048
     Dates: start: 20061029, end: 20061031
  3. GENTISONE HC [Concomitant]

REACTIONS (2)
  - ERYTHEMA NODOSUM [None]
  - PAIN IN EXTREMITY [None]
